FAERS Safety Report 7624957-0 (Version None)
Quarter: 2011Q3

REPORT INFORMATION
  Report Type: 
  Country: None (occurrence: None)
  Receive Date: 20110721
  Receipt Date: 20110720
  Transmission Date: 20111222
  Serious: Yes (Hospitalization)
  Sender: FDA-Public Use
  Company Number: IT-BRISTOL-MYERS SQUIBB COMPANY-15834906

PATIENT
  Age: 61 Year
  Sex: Female

DRUGS (4)
  1. ISOPTIN [Concomitant]
  2. VENTOLIN HFA [Concomitant]
  3. IRBESARTAN AND HYDROCHLOROTHIAZIDE [Suspect]
     Indication: HYPERTENSION
     Dosage: 1DF:1UNIT
     Route: 048
     Dates: start: 20101210, end: 20101221
  4. AMPICILLIN SODIUM [Concomitant]

REACTIONS (4)
  - HYPOTENSION [None]
  - HEAD INJURY [None]
  - FALL [None]
  - HYPONATRAEMIA [None]
